FAERS Safety Report 15147980 (Version 1)
Quarter: 2018Q3

REPORT INFORMATION
  Report Type: Spontaneous
  Country: US (occurrence: US)
  Receive Date: 20180619
  Receipt Date: 20180619
  Transmission Date: 20181010
  Serious: No
  Sender: FDA-Public Use
  Company Number: None

PATIENT
  Age: 69 Year
  Sex: Male

DRUGS (1)
  1. HARVONI [Suspect]
     Active Substance: LEDIPASVIR\SOFOSBUVIR
     Indication: CHRONIC HEPATITIS C
     Dosage: 90/400 MG ONE DAILY PO
     Route: 048
     Dates: start: 20170508

REACTIONS (3)
  - Pruritus [None]
  - Psoriasis [None]
  - Fatigue [None]

NARRATIVE: CASE EVENT DATE: 20170627
